FAERS Safety Report 12081746 (Version 1)
Quarter: 2016Q1

REPORT INFORMATION
  Report Type: Spontaneous
  Country: US (occurrence: US)
  Receive Date: 20160216
  Receipt Date: 20160216
  Transmission Date: 20160526
  Serious: Yes (Hospitalization, Other)
  Sender: FDA-Public Use
  Company Number: US-ELI_LILLY_AND_COMPANY-US201602002270

PATIENT
  Sex: Female
  Weight: 77 kg

DRUGS (7)
  1. VITAMIIN C [Concomitant]
     Active Substance: ASCORBIC ACID
     Indication: OSTEONECROSIS
  2. HYDROCORTISONE. [Suspect]
     Active Substance: HYDROCORTISONE
     Dosage: 25 MG, EACH MORNING
     Route: 065
  3. VITAMIN K                          /00854101/ [Concomitant]
     Indication: OSTEONECROSIS
  4. FORTEO [Suspect]
     Active Substance: TERIPARATIDE
     Indication: PRODUCT USED FOR UNKNOWN INDICATION
     Dosage: UNK UNK, OTHER
     Route: 065
     Dates: start: 2012
  5. FORTEO [Suspect]
     Active Substance: TERIPARATIDE
     Dosage: UNK, WEEKLY (1/W)
     Route: 065
     Dates: start: 20160120
  6. HYDROCORTISONE. [Suspect]
     Active Substance: HYDROCORTISONE
     Dosage: 15 MG, QD
     Route: 065
  7. VITAMIN D [Concomitant]
     Active Substance: CHOLECALCIFEROL
     Indication: OSTEONECROSIS
     Dosage: 1000 MG, UNK

REACTIONS (8)
  - Foot fracture [Not Recovered/Not Resolved]
  - Inappropriate schedule of drug administration [Unknown]
  - Hip deformity [Unknown]
  - Foot fracture [Not Recovered/Not Resolved]
  - Hand fracture [Not Recovered/Not Resolved]
  - Inappropriate schedule of drug administration [Unknown]
  - Osteonecrosis [Unknown]
  - Adrenocortical insufficiency acute [Unknown]

NARRATIVE: CASE EVENT DATE: 2012
